FAERS Safety Report 19613924 (Version 1)
Quarter: 2021Q3

REPORT INFORMATION
  Report Type: Spontaneous
  Country: US (occurrence: US)
  Receive Date: 20210727
  Receipt Date: 20210727
  Transmission Date: 20211014
  Serious: No
  Sender: FDA-Public Use
  Company Number: US-UNIQUE PHARMACEUTICAL LABORATORIES, A DIV. OF JBCPL-2021UNI000012

PATIENT
  Age: 64 Year
  Sex: Female

DRUGS (2)
  1. ALEVE [Concomitant]
     Active Substance: NAPROXEN SODIUM
     Indication: FRACTURE PAIN
     Dosage: 2 TABLETS
     Route: 065
  2. DICLOFENAC [Suspect]
     Active Substance: DICLOFENAC
     Indication: FRACTURE PAIN
     Dosage: 75 MILLIGRAM, BID
     Route: 048
     Dates: start: 20210218, end: 20210219

REACTIONS (4)
  - Inflammation [Recovering/Resolving]
  - Generalised oedema [Recovering/Resolving]
  - Joint swelling [Recovering/Resolving]
  - Product use in unapproved indication [Unknown]

NARRATIVE: CASE EVENT DATE: 20210218
